FAERS Safety Report 9917444 (Version 1)
Quarter: 2014Q1

REPORT INFORMATION
  Report Type: Spontaneous
  Country: AU (occurrence: AU)
  Receive Date: 20140221
  Receipt Date: 20140221
  Transmission Date: 20141002
  Serious: Yes (Death, Life-Threatening, Hospitalization, Other)
  Sender: FDA-Public Use
  Company Number: AU-BRISTOL-MYERS SQUIBB COMPANY-20180592

PATIENT
  Age: 70 Year
  Sex: Male

DRUGS (1)
  1. YERVOY [Suspect]
     Dosage: FOUR DOSES?4 INFUSIONS OF TREATMENT COMMENCED
     Dates: end: 20131217

REACTIONS (6)
  - Death [Fatal]
  - Intestinal perforation [Unknown]
  - Colitis [Unknown]
  - Diarrhoea [Unknown]
  - Malignant neoplasm progression [Unknown]
  - Renal failure [Unknown]
